FAERS Safety Report 4368877-6 (Version None)
Quarter: 2004Q2

REPORT INFORMATION
  Report Type: 
  Country: None (occurrence: None)
  Receive Date: 20040525
  Receipt Date: 20040511
  Transmission Date: 20050107
  Serious: Yes (Hospitalization)
  Sender: FDA-Public Use
  Company Number: US-SHR-03-014880

PATIENT
  Age: 45 Year
  Sex: Female
  Weight: 45.4 kg

DRUGS (4)
  1. BETASERON [Suspect]
     Indication: MULTIPLE SCLEROSIS
     Dosage: 8 MIU, EVERY 2D, SUBCUTANEOUS
     Route: 058
     Dates: start: 20020607, end: 20030801
  2. IMURAN [Suspect]
     Indication: MULTIPLE SCLEROSIS
     Dates: start: 20020101, end: 20030801
  3. VITAMINS NOS (VITAMINS NOS) [Concomitant]
  4. REMERON [Concomitant]

REACTIONS (4)
  - ASTHENIA [None]
  - BONE MARROW DEPRESSION [None]
  - FAECAL OCCULT BLOOD POSITIVE [None]
  - PALLOR [None]
